FAERS Safety Report 10543530 (Version 1)
Quarter: 2014Q4

REPORT INFORMATION
  Report Type: Spontaneous
  Country: CA (occurrence: CA)
  Receive Date: 20141027
  Receipt Date: 20141027
  Transmission Date: 20150529
  Serious: Yes (Other)
  Sender: FDA-Public Use
  Company Number: CA-ACTAVIS-2014-22601

PATIENT
  Age: 67 Year
  Sex: Male

DRUGS (5)
  1. VENLAFAXINE HYDROCHLORIDE (UNKNOWN) [Interacting]
     Active Substance: VENLAFAXINE HYDROCHLORIDE
     Indication: MAJOR DEPRESSION
     Dosage: 225 MG, DAILY
     Route: 065
  2. QUETIAPINE [Concomitant]
     Active Substance: QUETIAPINE
     Indication: MAJOR DEPRESSION
     Dosage: 50 MG, DAILY
  3. BUPROPION HYDROCHLORIDE (ACTAVIS LABORATORIES FL) [Interacting]
     Active Substance: BUPROPION HYDROCHLORIDE
     Dosage: 150 MG, DAILY
     Route: 065
  4. BUPROPION HYDROCHLORIDE (ACTAVIS LABORATORIES FL) [Suspect]
     Active Substance: BUPROPION HYDROCHLORIDE
     Indication: NICOTINE DEPENDENCE
     Dosage: 150 MG, BID
     Route: 065
  5. QUETIAPINE [Concomitant]
     Active Substance: QUETIAPINE
     Dosage: 25 MG, BID IN ADDITION WHEN IT IS NEEDED
     Route: 065

REACTIONS (4)
  - Anxiety [None]
  - Hypomania [Recovered/Resolved]
  - Disturbance in attention [None]
  - Drug interaction [Recovered/Resolved]
